FAERS Safety Report 7929615-0 (Version None)
Quarter: 2011Q4

REPORT INFORMATION
  Report Type: 
  Country: None (occurrence: None)
  Receive Date: 20111116
  Receipt Date: 20111103
  Transmission Date: 20120403
  Serious: Yes (Hospitalization)
  Sender: FDA-Public Use
  Company Number: CIP11002972

PATIENT
  Age: 75 Year
  Sex: Female
  Weight: 50 kg

DRUGS (10)
  1. OMEPRAZOLE [Concomitant]
  2. ALL OTHER THERAPEUTIC PRODUCTS [Concomitant]
  3. ALL OTHER THERAPEUTIC PRODUCTS [Concomitant]
  4. MUCOSOLVAN /00546001/ (AMBROXOL) [Concomitant]
  5. LEXOTAN (BROMAZEPAM) [Concomitant]
  6. ACTONEL [Suspect]
     Dosage: 35 MG ONCE WEEKLY, ORAL
     Route: 048
     Dates: start: 20030101
  7. RINOSORO SIC (SODIUM CHLORIDE) [Concomitant]
  8. ENOXAPARIN SODIUM [Concomitant]
  9. RITMONORM (PROPAFENONE HYDROCHLORIDE) [Concomitant]
  10. VISKEN [Concomitant]

REACTIONS (6)
  - POST PROCEDURAL COMPLICATION [None]
  - POSTOPERATIVE RENAL FAILURE [None]
  - ROAD TRAFFIC ACCIDENT [None]
  - POST PROCEDURAL HAEMORRHAGE [None]
  - HAEMORRHAGE [None]
  - FEMUR FRACTURE [None]
